FAERS Safety Report 10258549 (Version 1)
Quarter: 2014Q2

REPORT INFORMATION
  Report Type: Spontaneous
  Country: US (occurrence: None)
  Receive Date: 20140624
  Receipt Date: 20140624
  Transmission Date: 20141212
  Serious: Yes (Hospitalization)
  Sender: FDA-Public Use
  Company Number: None

PATIENT
  Age: 2 Year
  Sex: Male
  Weight: 12.8 kg

DRUGS (1)
  1. VINCRISTINE SULFATE [Suspect]
     Indication: RETINOBLASTOMA

REACTIONS (10)
  - Vomiting [None]
  - Pyrexia [None]
  - Decreased appetite [None]
  - Oliguria [None]
  - Asthenia [None]
  - Diarrhoea [None]
  - Hypophagia [None]
  - Human metapneumovirus test positive [None]
  - White blood cell count decreased [None]
  - Neutropenia [None]
